FAERS Safety Report 20690175 (Version 2)
Quarter: 2022Q4

REPORT INFORMATION
  Report Type: Spontaneous
  Country: DE (occurrence: DE)
  Receive Date: 20220408
  Receipt Date: 20221117
  Transmission Date: 20230113
  Serious: Yes (Hospitalization, Other)
  Sender: FDA-Public Use
  Company Number: DE-009507513-2204DEU000081

PATIENT
  Age: 51 Year
  Sex: Male

DRUGS (2)
  1. TEMODAL [Suspect]
     Active Substance: TEMOZOLOMIDE
     Indication: Astrocytoma malignant
     Dosage: UNK
     Route: 048
     Dates: start: 20220117, end: 20220218
  2. DOXYCYCLINE [Concomitant]
     Active Substance: DOXYCYCLINE
     Indication: Borrelia infection
     Dosage: 100MG, THREE TIMES A DAY (TID)
     Dates: start: 20220301, end: 20220321

REACTIONS (2)
  - Optic neuropathy [Recovered/Resolved with Sequelae]
  - Amaurosis [Recovered/Resolved with Sequelae]

NARRATIVE: CASE EVENT DATE: 20220201
